FAERS Safety Report 5748652-8 (Version None)
Quarter: 2008Q2

REPORT INFORMATION
  Report Type: 
  Country: None (occurrence: None)
  Receive Date: 20080521
  Receipt Date: 20080505
  Transmission Date: 20081010
  Serious: Yes (Other)
  Sender: FDA-Public Use
  Company Number: 2008AL003538

PATIENT
  Sex: Male

DRUGS (1)
  1. DIGOXIN [Suspect]

REACTIONS (1)
  - MULTIPLE INJURIES [None]
